FAERS Safety Report 9888870 (Version 3)
Quarter: 2014Q3

REPORT INFORMATION
  Report Type: Not Available
  Country: SE (occurrence: SE)
  Receive Date: 20140211
  Receipt Date: 20140725
  Transmission Date: 20150326
  Serious: Yes (Hospitalization)
  Sender: FDA-Public Use
  Company Number: SE-NAPPMUNDI-GBR-2014-0016989

PATIENT
  Age: 67 Year
  Sex: Male

DRUGS (1)
  1. OXYNORM [Suspect]
     Active Substance: OXYCODONE HYDROCHLORIDE
     Indication: PAIN IN EXTREMITY
     Dosage: 10MG, PRN
     Route: 048

REACTIONS (4)
  - Depressed level of consciousness [Unknown]
  - Confusional state [Unknown]
  - Disorientation [Unknown]
  - Petit mal epilepsy [Unknown]

NARRATIVE: CASE EVENT DATE: 201401
